FAERS Safety Report 13506309 (Version 1)
Quarter: 2017Q2

REPORT INFORMATION
  Report Type: Spontaneous
  Country: US (occurrence: US)
  Receive Date: 20170502
  Receipt Date: 20170502
  Transmission Date: 20170830
  Serious: No
  Sender: FDA-Public Use
  Company Number: US-ROCHE-1478175

PATIENT
  Age: 55 Year
  Sex: Male
  Weight: 69.01 kg

DRUGS (5)
  1. AVASTIN [Suspect]
     Active Substance: BEVACIZUMAB
     Dosage: LAST DOSE PRIOR TO EVENT: 14/OCT/2014.
     Route: 042
     Dates: start: 20140915
  2. BENADRYL [Concomitant]
     Active Substance: DIPHENHYDRAMINE HYDROCHLORIDE
     Route: 048
     Dates: start: 20140915, end: 20141014
  3. AVASTIN [Suspect]
     Active Substance: BEVACIZUMAB
     Indication: SMALL CELL LUNG CANCER
     Route: 042
  4. FUSILEV [Concomitant]
     Active Substance: LEVOLEUCOVORIN CALCIUM
     Route: 042
     Dates: start: 20140915, end: 20141014
  5. ALIMTA [Concomitant]
     Active Substance: PEMETREXED DISODIUM
     Route: 042
     Dates: start: 20140915, end: 20141014

REACTIONS (1)
  - Vascular rupture [Recovered/Resolved]

NARRATIVE: CASE EVENT DATE: 20141016
